FAERS Safety Report 26048959 (Version 1)
Quarter: 2025Q4

REPORT INFORMATION
  Report Type: Report from Study
  Country: US (occurrence: US)
  Receive Date: 20251115
  Receipt Date: 20251115
  Transmission Date: 20260118
  Serious: Yes (Hospitalization, Other)
  Sender: ABBVIE
  Company Number: US-ABBVIE-6543257

PATIENT
  Sex: Male

DRUGS (1)
  1. CREON [Suspect]
     Active Substance: PANCRELIPASE AMYLASE\PANCRELIPASE LIPASE\PANCRELIPASE PROTEASE
     Indication: Product used for unknown indication
     Route: 048
     Dates: start: 20241115

REACTIONS (6)
  - COVID-19 [Unknown]
  - Fall [Unknown]
  - Prostate cancer [Unknown]
  - Blood pressure abnormal [Unknown]
  - Cystitis [Unknown]
  - Skull fracture [Unknown]
